FAERS Safety Report 5850269-1 (Version None)
Quarter: 2008Q3

REPORT INFORMATION
  Report Type: 
  Country: None (occurrence: None)
  Receive Date: 20080819
  Receipt Date: 20080813
  Transmission Date: 20090109
  Serious: Yes (Other)
  Sender: FDA-Public Use
  Company Number: PHEH2008US07154

PATIENT
  Sex: Female
  Weight: 53.515 kg

DRUGS (1)
  1. RECLAST [Suspect]
     Indication: OSTEOPOROSIS
     Dosage: 5 MG, ONCE/SINGLE
     Route: 042
     Dates: start: 20080715, end: 20080715

REACTIONS (9)
  - ASTHENIA [None]
  - CHILLS [None]
  - FALL [None]
  - FATIGUE [None]
  - MALAISE [None]
  - MOTOR DYSFUNCTION [None]
  - PYREXIA [None]
  - SENSORY LOSS [None]
  - URINARY INCONTINENCE [None]
